FAERS Safety Report 13717533 (Version 1)
Quarter: 2017Q3

REPORT INFORMATION
  Report Type: Spontaneous
  Country: None (occurrence: US)
  Receive Date: 20170703
  Receipt Date: 20170703
  Transmission Date: 20171127
  Serious: No
  Sender: FDA-Public Use
  Company Number: None

PATIENT
  Age: 52 Year
  Sex: Female

DRUGS (1)
  1. STELARA [Suspect]
     Active Substance: USTEKINUMAB
     Dosage: 90 MG EVERY 3 MONTHS SQ
     Route: 058
     Dates: start: 20161201, end: 20170616

REACTIONS (2)
  - Therapy cessation [None]
  - Myalgia [None]

NARRATIVE: CASE EVENT DATE: 20170616
